FAERS Safety Report 4938386-1 (Version None)
Quarter: 2006Q1

REPORT INFORMATION
  Report Type: 
  Country: None (occurrence: None)
  Receive Date: 20060302
  Receipt Date: 20060222
  Transmission Date: 20060701
  Serious: Yes (Hospitalization)
  Sender: FDA-Public Use
  Company Number: 2006-00678

PATIENT
  Sex: Female

DRUGS (2)
  1. METHYLPREDNISOLONE [Suspect]
     Indication: PARAPARESIS
     Dosage: 32 MG, DAILY, ORAL
     Route: 048
  2. RANITIDINE (RANITIDINE) TABLET [Concomitant]

REACTIONS (4)
  - ABDOMINAL ABSCESS [None]
  - DIVERTICULAR PERFORATION [None]
  - INFLAMMATION [None]
  - PERITONEAL DISORDER [None]
